FAERS Safety Report 4434546-7 (Version None)
Quarter: 2004Q3

REPORT INFORMATION
  Report Type: 
  Country: None (occurrence: None)
  Receive Date: 20040721
  Receipt Date: 20030613
  Transmission Date: 20050211
  Serious: No
  Sender: FDA-Public Use
  Company Number: K200301025

PATIENT
  Age: 25 Year
  Sex: Female
  Weight: 72.6 kg

DRUGS (5)
  1. BICILLIN L-A [Suspect]
     Indication: LYME DISEASE
     Dosage: 1.2 MILLION UNITS, Q WEEK, INTRAMUSCULAR
     Route: 030
     Dates: end: 20030610
  2. AZITHROMYCIN [Concomitant]
  3. MEPRON [Concomitant]
  4. LEVBID (HYOSCYAMINE SULFATE) [Concomitant]
  5. SYNTHROID [Concomitant]

REACTIONS (6)
  - ARRHYTHMIA [None]
  - DIZZINESS [None]
  - FEELING HOT [None]
  - FEELING JITTERY [None]
  - HEART RATE INCREASED [None]
  - PARAESTHESIA [None]
